FAERS Safety Report 13182561 (Version 2)
Quarter: 2017Q1

REPORT INFORMATION
  Report Type: Report from Study
  Country: US (occurrence: HU)
  Receive Date: 20170203
  Receipt Date: 20170217
  Transmission Date: 20170428
  Serious: Yes (Other)
  Sender: FDA-Public Use
  Company Number: US-SUNOVION-2017SUN000400

PATIENT

DRUGS (1)
  1. INDACATEROL AND GLYCOPYRROLATE [Suspect]
     Active Substance: GLYCOPYRROLATE\INDACATEROL MALEATE
     Indication: CHRONIC OBSTRUCTIVE PULMONARY DISEASE
     Dosage: UNK
     Route: 055

REACTIONS (2)
  - Respiratory tract infection viral [Not Recovered/Not Resolved]
  - Dry mouth [Recovered/Resolved]
